FAERS Safety Report 14007632 (Version 1)
Quarter: 2017Q3

REPORT INFORMATION
  Report Type: Spontaneous
  Country: US (occurrence: US)
  Receive Date: 20170925
  Receipt Date: 20170925
  Transmission Date: 20171128
  Serious: Yes (Other)
  Sender: FDA-Public Use
  Company Number: US-MALLINCKRODT-T201703819

PATIENT
  Age: 65 Year
  Sex: Female
  Weight: 59 kg

DRUGS (12)
  1. KLONOPIN [Concomitant]
     Active Substance: CLONAZEPAM
     Indication: SLEEP DISORDER
  2. SYNTHROID [Concomitant]
     Active Substance: LEVOTHYROXINE SODIUM
     Indication: PRODUCT USED FOR UNKNOWN INDICATION
     Dosage: 150
  3. ATORVASTATIN [Concomitant]
     Active Substance: ATORVASTATIN
     Indication: BLOOD CHOLESTEROL INCREASED
  4. WELCHOL [Concomitant]
     Active Substance: COLESEVELAM HYDROCHLORIDE
     Indication: PRODUCT USED FOR UNKNOWN INDICATION
  5. LOMOTIL [Concomitant]
     Active Substance: ATROPINE SULFATE\DIPHENOXYLATE HYDROCHLORIDE
     Indication: DIARRHOEA
  6. FENTANYL TRANSDERMAL SYSTEM [Suspect]
     Active Substance: FENTANYL
     Indication: PAIN
     Dosage: 75 MCG/HR, DECREASED TO 50 MCG/HR, ONE PATCH EVERY 3 DAYS
     Route: 062
  7. MIRTAZAPINE A [Concomitant]
     Active Substance: MIRTAZAPINE
     Indication: ANTIDEPRESSANT THERAPY
  8. KLONOPIN [Concomitant]
     Active Substance: CLONAZEPAM
     Indication: TREMOR
  9. OXYCODONE [Suspect]
     Active Substance: OXYCODONE
     Dosage: 10 MG ONCE DAILY
     Route: 065
  10. PAROXETINE. [Concomitant]
     Active Substance: PAROXETINE
     Indication: PRODUCT USED FOR UNKNOWN INDICATION
  11. OXYCODONE [Suspect]
     Active Substance: OXYCODONE
     Indication: PRODUCT USED FOR UNKNOWN INDICATION
     Dosage: 20 MG ONCE DAILY
     Route: 065
  12. VENTOLIN [Concomitant]
     Active Substance: ALBUTEROL SULFATE
     Indication: PRODUCT USED FOR UNKNOWN INDICATION

REACTIONS (4)
  - Crohn^s disease [Not Recovered/Not Resolved]
  - Urinary tract infection [Not Recovered/Not Resolved]
  - Drug ineffective [Unknown]
  - Insomnia [Unknown]

NARRATIVE: CASE EVENT DATE: 201704
